FAERS Safety Report 8292900 (Version 2)
Quarter: 2013Q2

REPORT INFORMATION
  Report Type: Report from Study
  Country: FR (occurrence: FR)
  Receive Date: 20111215
  Receipt Date: 20130627
  Transmission Date: 20140414
  Serious: Yes (Death, Hospitalization)
  Sender: FDA-Public Use
  Company Number: FR-ROCHE-1021504

PATIENT
  Age: 82 Year
  Sex: Male

DRUGS (2)
  1. RITUXIMAB [Suspect]
     Indication: LYMPHOMA
     Route: 042
     Dates: start: 20071024
  2. INTERFERON ALFA [Concomitant]

REACTIONS (1)
  - Colon cancer metastatic [Fatal]
